FAERS Safety Report 6395236-7 (Version None)
Quarter: 2009Q4

REPORT INFORMATION
  Report Type: 
  Country: None (occurrence: None)
  Receive Date: 20091009
  Receipt Date: 20091001
  Transmission Date: 20100525
  Serious: Yes (Other)
  Sender: FDA-Public Use
  Company Number: US-ROCHE-659795

PATIENT
  Age: 15 Year
  Sex: Female

DRUGS (2)
  1. XELODA [Suspect]
     Indication: COLON CANCER
     Route: 048
     Dates: start: 20090925
  2. OXALIPLATIN [Suspect]
     Indication: DRUG USE FOR UNKNOWN INDICATION
     Route: 065
     Dates: start: 20090925

REACTIONS (3)
  - AMNESIA [None]
  - COGNITIVE DISORDER [None]
  - DEHYDRATION [None]
